FAERS Safety Report 8273565-X (Version None)
Quarter: 2012Q2

REPORT INFORMATION
  Report Type: 
  Country: None (occurrence: None)
  Receive Date: 20120411
  Receipt Date: 20120305
  Transmission Date: 20120825
  Serious: No
  Sender: FDA-Public Use
  Company Number: US-TEVA-318087USA

PATIENT
  Sex: Female
  Weight: 81.72 kg

DRUGS (11)
  1. NUVIGIL [Suspect]
     Indication: SLEEP APNOEA SYNDROME
     Route: 048
     Dates: start: 20111201, end: 20111201
  2. DULOXETINE HYDROCHLORIDE [Concomitant]
  3. KLON-CON [Concomitant]
  4. LORAZEPAM [Concomitant]
     Indication: ANXIETY
  5. DILTIAZEM HCL [Concomitant]
  6. ACETYLSALICYLIC ACID SRT [Concomitant]
  7. SIMVASTATIN [Concomitant]
  8. MELOXICAM [Concomitant]
  9. HYDROCHLOROTHIAZIDE [Concomitant]
     Indication: CARDIAC DISORDER
  10. LEVOTHYROXINE SODIUM [Concomitant]
  11. VITAMINS NOS [Concomitant]

REACTIONS (3)
  - TONGUE BLISTERING [None]
  - GLOSSODYNIA [None]
  - OROPHARYNGEAL PAIN [None]
